FAERS Safety Report 15291411 (Version 1)
Quarter: 2018Q3

REPORT INFORMATION
  Report Type: Spontaneous
  Country: US (occurrence: US)
  Receive Date: 20180817
  Receipt Date: 20180817
  Transmission Date: 20181010
  Serious: Yes (Hospitalization)
  Sender: FDA-Public Use
  Company Number: US-PFIZER INC-2018325444

PATIENT
  Age: 53 Year
  Sex: Female
  Weight: 61 kg

DRUGS (1)
  1. RAPAMUNE [Suspect]
     Active Substance: SIROLIMUS
     Indication: LUNG TRANSPLANT
     Dosage: 3 ML, 2X/DAY

REACTIONS (6)
  - Transplant rejection [Recovering/Resolving]
  - Mycobacterium abscessus infection [Recovering/Resolving]
  - Infection [Recovering/Resolving]
  - Pseudomonas infection [Recovering/Resolving]
  - Product use in unapproved indication [Unknown]
  - Blood creatinine abnormal [Recovering/Resolving]

NARRATIVE: CASE EVENT DATE: 2018
